FAERS Safety Report 5114614-7 (Version None)
Quarter: 2006Q3

REPORT INFORMATION
  Report Type: 
  Country: None (occurrence: None)
  Receive Date: 20060926
  Receipt Date: 20060918
  Transmission Date: 20061208
  Serious: Yes (Other)
  Sender: FDA-Public Use
  Company Number: FR-BRISTOL-MYERS SQUIBB COMPANY-13514336

PATIENT
  Age: 62 Year
  Sex: Male

DRUGS (2)
  1. CYCLOPHOSPHAMIDE [Suspect]
     Indication: ANGIOIMMUNOBLASTIC T-CELL LYMPHOMA
  2. PREDNISONE TAB [Concomitant]
     Indication: ANGIOIMMUNOBLASTIC T-CELL LYMPHOMA

REACTIONS (1)
  - ACUTE FEBRILE NEUTROPHILIC DERMATOSIS [None]
